FAERS Safety Report 10909234 (Version 1)
Quarter: 2015Q1

REPORT INFORMATION
  Report Type: Spontaneous
  Country: US (occurrence: US)
  Receive Date: 20150312
  Receipt Date: 20150312
  Transmission Date: 20150721
  Serious: No
  Sender: FDA-Public Use
  Company Number: US-SA-2014SA037079

PATIENT
  Age: 85 Year
  Sex: Female
  Weight: 102.05 kg

DRUGS (4)
  1. NASACORT ALLERGY 24HR [Suspect]
     Active Substance: TRIAMCINOLONE ACETONIDE
     Indication: HYPERSENSITIVITY
     Dosage: 2 SQUIRTS??DOSE FORM: INHALER DOSE:2 UNIT(S)
     Route: 065
     Dates: start: 20140317, end: 20140320
  2. SYNTHROID [Concomitant]
     Active Substance: LEVOTHYROXINE SODIUM
     Indication: HYPERTHYROIDISM
     Route: 065
  3. CALCITONIN, SALMON/CALCITONIN [Concomitant]
     Indication: CALCIUM DEFICIENCY
     Route: 045
  4. LIPITOR [Concomitant]
     Active Substance: ATORVASTATIN CALCIUM
     Indication: BLOOD CHOLESTEROL
     Route: 065

REACTIONS (3)
  - Hypertension [Recovered/Resolved]
  - Visual acuity reduced [Recovered/Resolved]
  - Dizziness [Recovered/Resolved]

NARRATIVE: CASE EVENT DATE: 20140318
